FAERS Safety Report 9852447 (Version 1)
Quarter: 2014Q1

REPORT INFORMATION
  Report Type: Spontaneous
  Country: AU (occurrence: AU)
  Receive Date: 20140129
  Receipt Date: 20140129
  Transmission Date: 20141002
  Serious: Yes (Death)
  Sender: FDA-Public Use
  Company Number: AU-SA-2014SA007601

PATIENT
  Age: 52 Year
  Sex: 0

DRUGS (1)
  1. TAXOTERE [Suspect]
     Indication: BLADDER TRANSITIONAL CELL CARCINOMA METASTATIC
     Route: 065

REACTIONS (1)
  - Death [Fatal]
